FAERS Safety Report 6633607-1 (Version None)
Quarter: 2010Q1

REPORT INFORMATION
  Report Type: 
  Country: None (occurrence: None)
  Receive Date: 20100312
  Receipt Date: 20100111
  Transmission Date: 20100710
  Serious: No
  Sender: FDA-Public Use
  Company Number: US-ABBOTT-10P-163-0618661-00

PATIENT
  Sex: Female
  Weight: 99.88 kg

DRUGS (3)
  1. ERYTHROMYCIN [Suspect]
     Indication: DRUG USE FOR UNKNOWN INDICATION
  2. SIMCOR [Suspect]
     Indication: BLOOD CHOLESTEROL INCREASED
     Dosage: 500/20MG
     Dates: start: 20091201, end: 20100104
  3. NYQUIL [Concomitant]
     Indication: DRUG USE FOR UNKNOWN INDICATION
     Dosage: CAP

REACTIONS (1)
  - PRURITUS [None]
